FAERS Safety Report 10603133 (Version 2)
Quarter: 2014Q4

REPORT INFORMATION
  Report Type: Spontaneous
  Country: US (occurrence: US)
  Receive Date: 20141124
  Receipt Date: 20141223
  Transmission Date: 20150529
  Serious: No
  Sender: FDA-Public Use
  Company Number: US-PFIZER INC-2014321444

PATIENT
  Age: 56 Year
  Sex: Female

DRUGS (1)
  1. ZYVOX [Suspect]
     Active Substance: LINEZOLID
     Indication: BETA HAEMOLYTIC STREPTOCOCCAL INFECTION
     Dosage: 600 MG, 2X/DAY
     Dates: start: 20141120

REACTIONS (2)
  - Visual impairment [Unknown]
  - Dizziness [Recovered/Resolved]
